FAERS Safety Report 15750320 (Version 1)
Quarter: 2018Q4

REPORT INFORMATION
  Report Type: Spontaneous
  Country: US (occurrence: US)
  Receive Date: 20181221
  Receipt Date: 20181221
  Transmission Date: 20190205
  Serious: Yes (Death)
  Sender: FDA-Public Use
  Company Number: None

PATIENT
  Sex: Male

DRUGS (9)
  1. PREDNISONE 5MG [Concomitant]
     Active Substance: PREDNISONE
  2. METFORMIN 500MG [Concomitant]
     Active Substance: METFORMIN HYDROCHLORIDE
  3. POTASSIUM CITRATE. [Concomitant]
     Active Substance: POTASSIUM CITRATE
  4. LUPRON [Suspect]
     Active Substance: LEUPROLIDE ACETATE
     Indication: PROSTATE CANCER
     Dosage: OTHER FREQUENCY:EVERY 4 MONTHS;?
     Route: 030
     Dates: start: 20170808, end: 20180817
  5. FLOMAX 0.4MG [Concomitant]
  6. ZYTIGA [Concomitant]
     Active Substance: ABIRATERONE ACETATE
  7. ASPIRIN 81MG [Concomitant]
     Active Substance: ASPIRIN
  8. GLIPIZIDE 5MG [Concomitant]
     Active Substance: GLIPIZIDE
  9. LISINOPRIL. [Concomitant]
     Active Substance: LISINOPRIL

REACTIONS (1)
  - Death [None]
